FAERS Safety Report 13039980 (Version 5)
Quarter: 2017Q1

REPORT INFORMATION
  Report Type: Spontaneous
  Country: RU (occurrence: RU)
  Receive Date: 20161219
  Receipt Date: 20170220
  Transmission Date: 20170428
  Serious: Yes (Hospitalization, Disabling)
  Sender: FDA-Public Use
  Company Number: RU-VALIDUS PHARMACEUTICALS LLC-RU-2016VAL003173

PATIENT
  Age: 57 Year
  Sex: Male

DRUGS (2)
  1. TRENTAL [Suspect]
     Active Substance: PENTOXIFYLLINE
     Indication: BLOOD DISORDER
     Dosage: 1 DOSAGE FORM; TWICE A DAY
     Route: 048
     Dates: start: 20160528
  2. TRENTAL [Suspect]
     Active Substance: PENTOXIFYLLINE
     Dosage: 1 DOSAGE FORM;TWICE A DAY
     Route: 048
     Dates: start: 20161206

REACTIONS (4)
  - Blood pressure increased [Recovered/Resolved]
  - Incoherent [Not Recovered/Not Resolved]
  - Dizziness [Recovered/Resolved]
  - Amnesia [Unknown]

NARRATIVE: CASE EVENT DATE: 20161206
